FAERS Safety Report 5189906-6 (Version None)
Quarter: 2006Q4

REPORT INFORMATION
  Report Type: 
  Country: None (occurrence: None)
  Receive Date: 20061218
  Receipt Date: 20061208
  Transmission Date: 20070319
  Serious: Yes (Death)
  Sender: FDA-Public Use
  Company Number: 200612AGG00539

PATIENT
  Age: 76 Year
  Sex: Female
  Weight: 63 kg

DRUGS (6)
  1. AGGRASTAT [Suspect]
     Indication: CARDIAC ENZYMES INCREASED
     Dosage: IV (ICH 042)
     Route: 042
     Dates: start: 20061202
  2. ASPIRIN [Concomitant]
  3. CLOPIDOGREL BISULFATE [Concomitant]
  4. HEPARIN LOW MOLECULAR WEIGHT [Concomitant]
  5. INSULIN [Concomitant]
  6. TICLOPIDINE HYDROCHLORIDE [Concomitant]

REACTIONS (2)
  - CORONARY ARTERY STENOSIS [None]
  - EJECTION FRACTION DECREASED [None]
